FAERS Safety Report 9452579 (Version 6)
Quarter: 2014Q1

REPORT INFORMATION
  Report Type: Spontaneous
  Country: US (occurrence: US)
  Receive Date: 20130812
  Receipt Date: 20140210
  Transmission Date: 20141002
  Serious: No
  Sender: FDA-Public Use
  Company Number: US-PFIZER INC-2013232199

PATIENT
  Age: 49 Year
  Sex: Male
  Weight: 81.63 kg

DRUGS (4)
  1. LYRICA [Suspect]
     Indication: DIABETIC NEUROPATHY
     Dosage: 150 MG, 2X/DAY
     Route: 048
     Dates: start: 201308, end: 2013
  2. WELLBUTRIN XL [Suspect]
     Indication: SMOKING CESSATION THERAPY
     Dosage: 150 MG, 1X/DAY
     Route: 048
  3. GLYBURIDE [Concomitant]
     Indication: BLOOD GLUCOSE ABNORMAL
     Dosage: 2.5 MG, 1X/DAY
  4. HYDROCODONE [Concomitant]
     Indication: PAIN
     Dosage: UNK, 2X/DAY

REACTIONS (3)
  - Pain [Unknown]
  - Pain in extremity [Not Recovered/Not Resolved]
  - Drug ineffective [Unknown]
